FAERS Safety Report 8763597 (Version 1)
Quarter: 2012Q4

REPORT INFORMATION
  Report Type: 
  Country: US (occurrence: US)
  Receive Date: 20120906
  Receipt Date: 20120906
  Transmission Date: 20130627
  Serious: No
  Sender: FDA-Public Use
  Company Number: US-BIOGENIDEC-2012BI034228

PATIENT
  Sex: Female

DRUGS (1)
  1. AVONEX [Suspect]
     Indication: MULTIPLE SCLEROSIS
     Route: 030
     Dates: start: 20091216

REACTIONS (6)
  - Visual impairment [Unknown]
  - Dehydration [Unknown]
  - Nasopharyngitis [Unknown]
  - Dizziness [Unknown]
  - Palpitations [Unknown]
  - Influenza like illness [Unknown]
